FAERS Safety Report 5327260-7 (Version None)
Quarter: 2007Q2

REPORT INFORMATION
  Report Type: 
  Country: None (occurrence: None)
  Receive Date: 20070517
  Receipt Date: 20070509
  Transmission Date: 20071010
  Serious: Yes (Other)
  Sender: FDA-Public Use
  Company Number: JP-BAYER-200710334BYL

PATIENT
  Age: 66 Year
  Sex: Female

DRUGS (9)
  1. CIPROXAN-I.V. [Suspect]
     Indication: BILIARY TRACT INFECTION
     Dosage: TOTAL DAILY DOSE: 600 MG  UNIT DOSE: 300 MG
     Route: 042
     Dates: start: 20070419, end: 20070509
  2. MUSCULAX [Interacting]
     Indication: MUSCLE RELAXANT THERAPY
     Dosage: TOTAL DAILY DOSE: 15 MG
     Route: 042
     Dates: start: 20070427, end: 20070427
  3. DIPRIVAN [Concomitant]
     Dosage: TOTAL DAILY DOSE: 100 MG
     Route: 042
     Dates: start: 20070427, end: 20070427
  4. SEVOFLURANE [Concomitant]
     Dosage: TOTAL DAILY DOSE: 100 ML
     Route: 055
     Dates: start: 20070427, end: 20070427
  5. CARBOCAIN [Concomitant]
     Dosage: TOTAL DAILY DOSE: 225 ML
     Route: 008
     Dates: start: 20070427, end: 20070427
  6. FENTANYL [Concomitant]
     Dosage: TOTAL DAILY DOSE: 0.1 MG
     Route: 042
     Dates: start: 20070427, end: 20070427
  7. ROPION [Concomitant]
     Dosage: TOTAL DAILY DOSE: 50 MG
     Route: 042
     Dates: start: 20070427, end: 20070427
  8. MORPHINE [Concomitant]
     Dosage: TOTAL DAILY DOSE: 2 MG
     Route: 008
     Dates: start: 20070427, end: 20070427
  9. LAUGHING GAS [Concomitant]
     Route: 055
     Dates: start: 20070427, end: 20070427

REACTIONS (2)
  - DELAYED RECOVERY FROM ANAESTHESIA [None]
  - DRUG INTERACTION [None]
